FAERS Safety Report 23460570 (Version 1)
Quarter: 2024Q1

REPORT INFORMATION
  Report Type: Other
  Country: PK (occurrence: None)
  Receive Date: 20240131
  Receipt Date: 20240131
  Transmission Date: 20240410
  Serious: Yes (Death, Hospitalization)
  Sender: FDA-Public Use
  Company Number: PK-ROCHE-3500539

PATIENT
  Age: 15 Year
  Sex: Female

DRUGS (1)
  1. RITUXIMAB [Suspect]
     Active Substance: RITUXIMAB
     Indication: Burkitt^s lymphoma
     Dosage: 06 CYCLES
     Route: 042
     Dates: start: 20231027

REACTIONS (2)
  - Condition aggravated [Fatal]
  - Pyrexia [Fatal]
